FAERS Safety Report 23530304 (Version 4)
Quarter: 2024Q1

REPORT INFORMATION
  Report Type: Spontaneous
  Country: FR (occurrence: FR)
  Receive Date: 20240216
  Receipt Date: 20240316
  Transmission Date: 20240410
  Serious: Yes (Hospitalization)
  Sender: FDA-Public Use
  Company Number: None

PATIENT
  Age: 70 Year
  Sex: Male
  Weight: 98 kg

DRUGS (6)
  1. FEBUXOSTAT [Suspect]
     Active Substance: FEBUXOSTAT
     Indication: Gout
     Dosage: 1-0-0
     Route: 048
     Dates: start: 2020
  2. INDAPAMIDE\PERINDOPRIL [Suspect]
     Active Substance: INDAPAMIDE\PERINDOPRIL
     Indication: Hypertension
     Dosage: 1-0-0,10 MG/2.5 MG
     Route: 048
     Dates: start: 2020
  3. PRAVASTATIN SODIUM [Suspect]
     Active Substance: PRAVASTATIN SODIUM
     Indication: Hypercholesterolaemia
     Dosage: 0-0-1
     Route: 048
     Dates: start: 2020
  4. METFORMIN HYDROCHLORIDE\SAXAGLIPTIN [Suspect]
     Active Substance: METFORMIN HYDROCHLORIDE\SAXAGLIPTIN
     Indication: Type 2 diabetes mellitus
     Dosage: 1-0-1,2.5 MG/1000 MG
     Route: 048
     Dates: start: 2022, end: 20240119
  5. LANSOPRAZOLE [Suspect]
     Active Substance: LANSOPRAZOLE
     Indication: Hypercholesterolaemia
     Dosage: 0-0-1
     Route: 048
     Dates: start: 2020
  6. CIPROFLOXACIN HYDROCHLORIDE [Suspect]
     Active Substance: CIPROFLOXACIN HYDROCHLORIDE
     Indication: Cystitis
     Dosage: CHLORHYDRATE DE CIPROFLOXACINE
     Route: 048
     Dates: start: 20240112, end: 202401

REACTIONS (1)
  - Pancreatitis acute [Recovering/Resolving]

NARRATIVE: CASE EVENT DATE: 20240117
